FAERS Safety Report 7834007-9 (Version None)
Quarter: 2011Q4

REPORT INFORMATION
  Report Type: 
  Country: None (occurrence: None)
  Receive Date: 20111024
  Receipt Date: 20111012
  Transmission Date: 20120403
  Serious: Yes (Hospitalization)
  Sender: FDA-Public Use
  Company Number: FR-JNJFOC-20111009509

PATIENT
  Age: 84 Year
  Sex: Female

DRUGS (7)
  1. ACETAMINOPHEN AND TRAMADOL HCL [Suspect]
     Indication: PAIN
     Route: 048
     Dates: end: 20110920
  2. GABAPENTIN [Suspect]
     Indication: EPILEPSY
     Route: 048
     Dates: start: 20090801, end: 20110920
  3. LEVOTHYROXINE SODIUM [Concomitant]
     Route: 065
  4. LAMICTAL [Suspect]
     Indication: EPILEPSY
     Route: 048
     Dates: end: 20110920
  5. STABLON [Suspect]
     Indication: PRODUCT USED FOR UNKNOWN INDICATION
     Route: 048
     Dates: end: 20110920
  6. LAMICTAL [Suspect]
     Route: 048
     Dates: start: 20110817
  7. BISOPROLOL FUMARATE [Concomitant]
     Route: 065

REACTIONS (2)
  - CONFUSIONAL STATE [None]
  - CYTOLYTIC HEPATITIS [None]
